FAERS Safety Report 16248986 (Version 1)
Quarter: 2019Q2

REPORT INFORMATION
  Report Type: Spontaneous
  Country: FR (occurrence: FR)
  Receive Date: 20190429
  Receipt Date: 20190429
  Transmission Date: 20190711
  Serious: Yes (Other)
  Sender: FDA-Public Use
  Company Number: FR-ACCORD-124168

PATIENT
  Age: 67 Year
  Sex: Male

DRUGS (5)
  1. IMUREL [Interacting]
     Active Substance: AZATHIOPRINE SODIUM
     Indication: AUTOIMMUNE HEPATITIS
     Route: 048
     Dates: start: 20190107, end: 20190130
  2. ALLOPURINOL. [Suspect]
     Active Substance: ALLOPURINOL
     Indication: HYPERURICAEMIA
     Route: 048
     Dates: start: 20041123, end: 20190204
  3. INDAPAMIDE. [Concomitant]
     Active Substance: INDAPAMIDE
     Route: 048
  4. PARACETAMOL [Concomitant]
     Active Substance: ACETAMINOPHEN
     Route: 048
  5. LANSOPRAZOLE. [Concomitant]
     Active Substance: LANSOPRAZOLE
     Route: 048

REACTIONS (4)
  - Drug interaction [Unknown]
  - General physical health deterioration [Recovered/Resolved]
  - Thrombocytopenia [Recovered/Resolved]
  - Asthenia [Recovering/Resolving]

NARRATIVE: CASE EVENT DATE: 20190130
